FAERS Safety Report 9351365 (Version 2)
Quarter: 2013Q2

REPORT INFORMATION
  Report Type: Spontaneous
  Country: PE (occurrence: PE)
  Receive Date: 20130617
  Receipt Date: 20130626
  Transmission Date: 20140414
  Serious: Yes (Hospitalization)
  Sender: FDA-Public Use
  Company Number: PE-PFIZER INC-2013180903

PATIENT
  Age: 47 Year
  Sex: Male

DRUGS (2)
  1. ZELDOX [Suspect]
     Dosage: 60 MG, UNK
     Route: 048
     Dates: start: 2011
  2. PREDNISONE [Concomitant]
     Dosage: UNK
     Dates: start: 2013

REACTIONS (2)
  - Lung neoplasm malignant [Not Recovered/Not Resolved]
  - Off label use [Not Recovered/Not Resolved]
